FAERS Safety Report 16794559 (Version 1)
Quarter: 2019Q4

REPORT INFORMATION
  Report Type: Spontaneous
  Country: US (occurrence: US)
  Receive Date: 20190910
  Receipt Date: 20190910
  Transmission Date: 20200122
  Serious: No
  Sender: FDA-Public Use
  Company Number: None

PATIENT
  Age: 59 Year
  Sex: Female
  Weight: 108 kg

DRUGS (2)
  1. EXTENDED RELEASE HYDROMORPHONE 12 MG [Suspect]
     Active Substance: HYDROMORPHONE HYDROCHLORIDE
     Indication: PAIN
     Dosage: ?          QUANTITY:1 TABLET(S);?
     Route: 048
     Dates: start: 20120902, end: 20181031
  2. OXYCODONE 10/325 [Suspect]
     Active Substance: ACETAMINOPHEN\OXYCODONE HYDROCHLORIDE

REACTIONS (12)
  - Ulcer [None]
  - Poor personal hygiene [None]
  - Inability to afford medication [None]
  - Suicidal ideation [None]
  - Bedridden [None]
  - Diabetes mellitus inadequate control [None]
  - Therapy cessation [None]
  - Loss of personal independence in daily activities [None]
  - Insomnia [None]
  - Gait disturbance [None]
  - Impaired driving ability [None]
  - Pain [None]

NARRATIVE: CASE EVENT DATE: 20190601
